FAERS Safety Report 9314606 (Version 2)
Quarter: 2013Q2

REPORT INFORMATION
  Report Type: Report from Study
  Country: CA (occurrence: CA)
  Receive Date: 20130529
  Receipt Date: 20130606
  Transmission Date: 20140414
  Serious: Yes (Hospitalization)
  Sender: FDA-Public Use
  Company Number: CA-JNJFOC-20130517589

PATIENT
  Age: 32 Year
  Sex: Male
  Weight: 95 kg

DRUGS (3)
  1. REMICADE [Suspect]
     Indication: CROHN^S DISEASE
     Route: 042
  2. METHOTREXATE [Concomitant]
     Route: 065
     Dates: start: 2013
  3. DILAUDID [Concomitant]
     Route: 065
     Dates: start: 2013

REACTIONS (2)
  - Crohn^s disease [Not Recovered/Not Resolved]
  - Weight decreased [Unknown]
